FAERS Safety Report 26040110 (Version 2)
Quarter: 2025Q4

REPORT INFORMATION
  Report Type: Report from Study
  Country: ZA (occurrence: ZA)
  Receive Date: 20251113
  Receipt Date: 20251117
  Transmission Date: 20260117
  Serious: Yes (Other)
  Sender: ROCHE
  Company Number: ZA-ROCHE-10000078952

PATIENT
  Sex: Female

DRUGS (2)
  1. VABYSMO [Suspect]
     Active Substance: FARICIMAB-SVOA
     Indication: Macular degeneration
     Dosage: 2ND INJ - 15/NOV/2024?3RD INJ - 10/JAN/2025?4TH INJ - 07/MAR/2025 [8 WEEKS ]
     Route: 050
     Dates: start: 20240910
  2. VABYSMO [Suspect]
     Active Substance: FARICIMAB-SVOA
     Dosage: 2ND INJ - 15/NOV/2024?3RD INJ - 10/JAN/2025?4TH INJ - 07/MAR/2025 [8 WEEKS ]
     Route: 050
     Dates: start: 20240910

REACTIONS (3)
  - Off label use [Unknown]
  - Optical coherence tomography abnormal [Unknown]
  - Retinal thickening [Unknown]
